FAERS Safety Report 14257498 (Version 5)
Quarter: 2018Q2

REPORT INFORMATION
  Report Type: Other
  Country: DE (occurrence: DE)
  Receive Date: 20171207
  Receipt Date: 20180517
  Transmission Date: 20180711
  Serious: Yes (Hospitalization, Other)
  Sender: FDA-Public Use
  Company Number: DE-MACLEODS PHARMACEUTICALS US LTD-MAC2017006487

PATIENT

DRUGS (4)
  1. OMEPRAZOLE. [Suspect]
     Active Substance: OMEPRAZOLE
     Indication: GASTROOESOPHAGEAL REFLUX DISEASE
     Dosage: 1 DF, UNK, SUMMER OF 2014, TOOK 1 OMEPRAZOLE TABLET FOR REFLUX
     Route: 048
     Dates: start: 201402
  2. OMEPRAZOLE. [Suspect]
     Active Substance: OMEPRAZOLE
     Dosage: 1 DOSAGE FORM, TABLET
     Route: 048
     Dates: start: 2014
  3. AZITHROMYCIN ANHYDROUS. [Concomitant]
     Active Substance: AZITHROMYCIN ANHYDROUS
     Indication: BRONCHITIS
     Dosage: UNK
     Route: 065
     Dates: start: 201402
  4. PANTOPRAZOLE [Suspect]
     Active Substance: PANTOPRAZOLE
     Indication: GASTROOESOPHAGEAL REFLUX DISEASE
     Dosage: UNK
     Route: 065
     Dates: start: 201401

REACTIONS (8)
  - Therapeutic product cross-reactivity [Unknown]
  - Flushing [Unknown]
  - Anaphylactic reaction [Unknown]
  - Diarrhoea [Unknown]
  - Hypotension [Unknown]
  - Vomiting [Unknown]
  - Abdominal pain [Unknown]
  - Type I hypersensitivity [Unknown]

NARRATIVE: CASE EVENT DATE: 2014
